FAERS Safety Report 8887168 (Version 1)
Quarter: 2012Q4

REPORT INFORMATION
  Report Type: 
  Country: US (occurrence: US)
  Receive Date: 20121105
  Receipt Date: 20121105
  Transmission Date: 20130627
  Serious: Yes (Other)
  Sender: FDA-Public Use
  Company Number: US-PFIZER INC-2012274869

PATIENT
  Sex: Female

DRUGS (2)
  1. LYRICA [Suspect]
     Dosage: 75 mg, UNK
     Dates: end: 20121101
  2. LYRICA [Suspect]
     Dosage: 150 mg, UNK
     Dates: start: 20121101

REACTIONS (1)
  - VIIth nerve paralysis [Not Recovered/Not Resolved]
